FAERS Safety Report 12087942 (Version 1)
Quarter: 2016Q1

REPORT INFORMATION
  Report Type: Spontaneous
  Country: US (occurrence: US)
  Receive Date: 20160217
  Receipt Date: 20160217
  Transmission Date: 20160526
  Serious: No
  Sender: FDA-Public Use
  Company Number: US-ALLERGAN-1517962US

PATIENT
  Sex: Female

DRUGS (1)
  1. RESTASIS [Suspect]
     Active Substance: CYCLOSPORINE
     Indication: EYE IRRITATION
     Dosage: 2 GTT, BID
     Dates: start: 201506

REACTIONS (4)
  - Muscle twitching [Unknown]
  - Incorrect product storage [Unknown]
  - Inappropriate schedule of drug administration [Unknown]
  - Poor quality drug administered [Unknown]
